FAERS Safety Report 10279884 (Version 1)
Quarter: 2014Q3

REPORT INFORMATION
  Report Type: Spontaneous
  Country: IN (occurrence: None)
  Receive Date: 20140702
  Receipt Date: 20140702
  Transmission Date: 20150326
  Serious: Yes (Hospitalization)
  Sender: FDA-Public Use
  Company Number: AUR-APL-2014-06998

PATIENT
  Age: 11 Year
  Sex: Female

DRUGS (1)
  1. LEVETIRACETAM TABLETS [Suspect]
     Active Substance: LEVETIRACETAM
     Indication: CONVULSION

REACTIONS (8)
  - Formication [None]
  - Drug prescribing error [None]
  - Shared psychotic disorder [None]
  - Hallucination, visual [None]
  - Restlessness [None]
  - Abnormal behaviour [None]
  - Drug administration error [None]
  - Logorrhoea [None]
